FAERS Safety Report 24904380 (Version 1)
Quarter: 2025Q1

REPORT INFORMATION
  Report Type: Spontaneous
  Country: DE (occurrence: DE)
  Receive Date: 20250130
  Receipt Date: 20250130
  Transmission Date: 20250409
  Serious: Yes (Other)
  Sender: ARGENX BVBA
  Company Number: None

PATIENT

DRUGS (7)
  1. VYVGART [Suspect]
     Active Substance: EFGARTIGIMOD ALFA-FCAB
     Indication: Myasthenia gravis
     Route: 058
     Dates: start: 20231219
  2. EFGARTIGIMOD ALFA [Suspect]
     Active Substance: EFGARTIGIMOD ALFA
     Indication: Myasthenia gravis
     Route: 042
     Dates: start: 20230109
  3. Kalymin [Concomitant]
     Indication: Muscular weakness
     Route: 048
     Dates: start: 202110
  4. Kalymin [Concomitant]
     Route: 048
     Dates: start: 202110
  5. PREDNISOLONE [Concomitant]
     Active Substance: PREDNISOLONE
     Indication: Muscular weakness
     Route: 048
     Dates: start: 202110
  6. AZATHIOPRINE [Concomitant]
     Active Substance: AZATHIOPRINE
     Indication: Muscular weakness
     Route: 048
     Dates: start: 202201
  7. VITAMIN D [Concomitant]
     Active Substance: VITAMIN D NOS
     Indication: Product used for unknown indication
     Route: 065
     Dates: start: 202201

REACTIONS (21)
  - Hypotension [Recovered/Resolved]
  - Fatigue [Unknown]
  - Nausea [Recovered/Resolved]
  - Headache [Unknown]
  - Headache [Recovered/Resolved]
  - Presyncope [Unknown]
  - Erythema [Recovering/Resolving]
  - Pruritus [Recovering/Resolving]
  - Skin discolouration [Recovering/Resolving]
  - Skin lesion [Recovering/Resolving]
  - Cardiovascular disorder [Unknown]
  - Dysuria [Unknown]
  - Injection site pain [Unknown]
  - Injection site swelling [Unknown]
  - Injection site erythema [Unknown]
  - Skin exfoliation [Unknown]
  - Skin burning sensation [Recovering/Resolving]
  - Papule [Recovering/Resolving]
  - Asthenia [Recovered/Resolved]
  - Rash macular [Recovering/Resolving]
  - Dizziness [Recovered/Resolved]

NARRATIVE: CASE EVENT DATE: 20231201
